FAERS Safety Report 7442937-5 (Version None)
Quarter: 2011Q2

REPORT INFORMATION
  Report Type: 
  Country: None (occurrence: None)
  Receive Date: 20110428
  Receipt Date: 20110425
  Transmission Date: 20111010
  Serious: Yes (Other)
  Sender: FDA-Public Use
  Company Number: US-SANOFI-AVENTIS-2011SA014252

PATIENT
  Age: 81 Year
  Sex: Female
  Weight: 84.82 kg

DRUGS (1)
  1. LASIX [Suspect]
     Dosage: TOOK EXTRA DOSE ACCIDENTALLY
     Route: 065

REACTIONS (2)
  - INCORRECT DOSE ADMINISTERED [None]
  - RENAL FAILURE ACUTE [None]
